FAERS Safety Report 20927907 (Version 1)
Quarter: 2022Q2

REPORT INFORMATION
  Report Type: Spontaneous
  Country: FR (occurrence: FR)
  Receive Date: 20220607
  Receipt Date: 20220607
  Transmission Date: 20220721
  Serious: Yes (Other)
  Sender: FDA-Public Use
  Company Number: FR-Teikoku Pharma USA-TPU2022-00494

PATIENT
  Age: 80 Year
  Sex: Female

DRUGS (13)
  1. LIDOCAINE [Suspect]
     Active Substance: LIDOCAINE
     Indication: Anaesthesia
     Route: 065
     Dates: start: 20210813, end: 20210813
  2. AUGMENTIN [Suspect]
     Active Substance: AMOXICILLIN\CLAVULANATE POTASSIUM
     Indication: Antibiotic prophylaxis
     Route: 065
     Dates: start: 20210813, end: 20210813
  3. ROPIVACAINE HYDROCHLORIDE [Suspect]
     Active Substance: ROPIVACAINE HYDROCHLORIDE
     Indication: Anaesthesia
     Route: 065
     Dates: start: 20210813, end: 20210813
  4. KETAMINE [Suspect]
     Active Substance: KETAMINE
     Indication: Anaesthesia
     Route: 065
     Dates: start: 20210813, end: 20210813
  5. MIDAZOLAM [Suspect]
     Active Substance: MIDAZOLAM
     Indication: Anaesthesia
     Route: 065
     Dates: start: 20210813, end: 20210813
  6. MOVICOL [Concomitant]
     Active Substance: POLYETHYLENE GLYCOL 3350\POTASSIUM CHLORIDE\SODIUM BICARBONATE\SODIUM CHLORIDE
  7. EXELON [Concomitant]
     Active Substance: RIVASTIGMINE TARTRATE
  8. INSULIN ASPART [Concomitant]
     Active Substance: INSULIN ASPART
  9. DOLENIO [GLUCOSAMINE SULFATE] [Concomitant]
  10. COVERAM [Concomitant]
     Active Substance: AMLODIPINE\PERINDOPRIL
  11. LEVOTHYROXINE [Concomitant]
     Active Substance: LEVOTHYROXINE
  12. FENTANYL [Concomitant]
     Active Substance: FENTANYL
  13. VIREAD [Concomitant]
     Active Substance: TENOFOVIR DISOPROXIL FUMARATE

REACTIONS (1)
  - Anaphylactic reaction [Recovered/Resolved]

NARRATIVE: CASE EVENT DATE: 20210813
